FAERS Safety Report 8592956 (Version 3)
Quarter: 2012Q4

REPORT INFORMATION
  Report Type: Report from Study
  Country: DE (occurrence: DE)
  Receive Date: 20120604
  Receipt Date: 20121025
  Transmission Date: 20130627
  Serious: Yes (Hospitalization)
  Sender: FDA-Public Use
  Company Number: DE-BIOGENIDEC-2012BI019068

PATIENT
  Age: 32 Year
  Sex: Female

DRUGS (3)
  1. TYSABRI [Suspect]
     Indication: MULTIPLE SCLEROSIS
     Route: 042
     Dates: start: 20070822
  2. DIBENZYRAN [Concomitant]
     Indication: INCONTINENCE
     Dates: start: 20080401
  3. BISOPROLOL [Concomitant]
     Indication: TACHYCARDIA
     Dates: start: 20080401

REACTIONS (1)
  - Trigeminal neuralgia [Not Recovered/Not Resolved]
